FAERS Safety Report 9773692 (Version 2)
Quarter: 2014Q2

REPORT INFORMATION
  Report Type: Spontaneous
  Country: GB (occurrence: None)
  Receive Date: 20131218
  Receipt Date: 20140409
  Transmission Date: 20141212
  Serious: Yes (Other)
  Sender: FDA-Public Use
  Company Number: AUR-APL-2013-10532

PATIENT
  Age: 24 Year
  Sex: Male

DRUGS (3)
  1. LEVETIRACETAM [Suspect]
     Indication: TONIC CONVULSION
  2. PHENOBARBITONE [Suspect]
     Indication: TONIC CONVULSION
  3. VALPROATE [Suspect]
     Indication: TONIC CONVULSION

REACTIONS (3)
  - Convulsion [None]
  - No therapeutic response [None]
  - Hyperammonaemic encephalopathy [None]
